FAERS Safety Report 21847794 (Version 1)
Quarter: 2023Q1

REPORT INFORMATION
  Report Type: Spontaneous
  Country: US (occurrence: None)
  Receive Date: 20230110
  Receipt Date: 20230110
  Transmission Date: 20230418
  Serious: No
  Sender: FDA-Public Use
  Company Number: None

PATIENT
  Sex: Female

DRUGS (1)
  1. NEXPLANON [Suspect]
     Active Substance: ETONOGESTREL
     Indication: Contraception
     Dosage: FREQUENCY : ONCE;?OTHER ROUTE : SUBDERMALLY;?
     Route: 050
     Dates: start: 202106

REACTIONS (2)
  - Heavy menstrual bleeding [None]
  - Device breakage [None]
